FAERS Safety Report 17064383 (Version 1)
Quarter: 2019Q4

REPORT INFORMATION
  Report Type: Spontaneous
  Country: ES (occurrence: ES)
  Receive Date: 20191122
  Receipt Date: 20191122
  Transmission Date: 20200122
  Serious: Yes (Hospitalization)
  Sender: FDA-Public Use
  Company Number: ES-PFIZER INC-2019502429

PATIENT
  Age: 83 Year
  Sex: Male

DRUGS (3)
  1. DINISOR RETARD [Suspect]
     Active Substance: DILTIAZEM HYDROCHLORIDE
     Indication: HYPERTENSION
     Dosage: 120 MG, 1X/DAY
     Route: 048
     Dates: start: 201306, end: 20191027
  2. ENALAPRIL [Concomitant]
     Active Substance: ENALAPRIL
     Indication: HYPERTENSION
     Dosage: 10 MG, 1X/DAY
     Route: 048
     Dates: start: 20151113
  3. DOXAZOSINA NORMON [Concomitant]
     Indication: ESSENTIAL HYPERTENSION
     Dosage: 4 MG, 1X/DAY
     Route: 048
     Dates: start: 20070126

REACTIONS (3)
  - Atrioventricular block [Recovering/Resolving]
  - Atrial fibrillation [Recovering/Resolving]
  - Syncope [Recovering/Resolving]

NARRATIVE: CASE EVENT DATE: 20191027
